FAERS Safety Report 25558490 (Version 1)
Quarter: 2025Q3

REPORT INFORMATION
  Report Type: Spontaneous
  Country: US (occurrence: US)
  Receive Date: 20250715
  Receipt Date: 20250715
  Transmission Date: 20251020
  Serious: No
  Sender: NOVO NORDISK
  Company Number: US-NOVOPROD-1435660

PATIENT

DRUGS (2)
  1. OZEMPIC [Suspect]
     Active Substance: SEMAGLUTIDE
     Indication: Product used for unknown indication
  2. CYCLO PROGYNOVA [Concomitant]
     Indication: Product used for unknown indication

REACTIONS (3)
  - Weight increased [Unknown]
  - Hormone level abnormal [Unknown]
  - Hypometabolism [Unknown]
